FAERS Safety Report 24196057 (Version 1)
Quarter: 2024Q3

REPORT INFORMATION
  Report Type: Spontaneous
  Country: US (occurrence: None)
  Receive Date: 20240807
  Receipt Date: 20240807
  Transmission Date: 20241017
  Serious: Yes (Disabling)
  Sender: Public
  Company Number: None

PATIENT
  Age: 53 Year
  Sex: Female
  Weight: 72.57 kg

DRUGS (2)
  1. NORPLANT [Suspect]
     Active Substance: LEVONORGESTREL
     Indication: Contraception
     Dates: start: 19930101, end: 19950102
  2. covid vaccine [Concomitant]

REACTIONS (5)
  - Scar [None]
  - Pruritus [None]
  - Peripheral swelling [None]
  - Erythema [None]
  - Mass [None]

NARRATIVE: CASE EVENT DATE: 20240807
